FAERS Safety Report 7033640-4 (Version None)
Quarter: 2010Q4

REPORT INFORMATION
  Report Type: 
  Country: None (occurrence: None)
  Receive Date: 20101005
  Receipt Date: 20100923
  Transmission Date: 20110411
  Serious: Yes (Other)
  Sender: FDA-Public Use
  Company Number: 2010-3192

PATIENT
  Sex: Male

DRUGS (3)
  1. APO-GO AMPOULES (APO-GO) (APOMORPHINE HYDROCHLORIDE) (APOMORPHINE HYDR [Suspect]
     Indication: PARKINSON'S DISEASE
     Dosage: (CONTINUOUS INFUSION), SUBCUTANEOUS
     Route: 058
  2. SINEMET CR [Suspect]
     Indication: PRODUCT USED FOR UNKNOWN INDICATION
     Dosage: (IN THE MORNING AND AT NIGHT)
  3. SINEMET [Concomitant]

REACTIONS (7)
  - APNOEA [None]
  - CONFUSIONAL STATE [None]
  - DEVICE COMPUTER ISSUE [None]
  - DEVICE MALFUNCTION [None]
  - INCORRECT DOSE ADMINISTERED [None]
  - SKIN DISCOLOURATION [None]
  - SYNCOPE [None]
